APPROVED DRUG PRODUCT: XYLOCAINE DENTAL
Active Ingredient: LIDOCAINE HYDROCHLORIDE
Strength: 2%
Dosage Form/Route: INJECTABLE;INJECTION
Application: N021380 | Product #001
Applicant: DENTSPLY PHARMACEUTICAL INC
Approved: Approved Prior to Jan 1, 1982 | RLD: No | RS: No | Type: DISCN